FAERS Safety Report 9054523 (Version 2)
Quarter: 2013Q1

REPORT INFORMATION
  Report Type: Spontaneous
  Country: US (occurrence: US)
  Receive Date: 20130208
  Receipt Date: 20130307
  Transmission Date: 20140127
  Serious: Yes (Hospitalization)
  Sender: FDA-Public Use
  Company Number: US-B.I. PHARMACEUTICALS,INC./RIDGEFIELD-2013-BI-02811BP

PATIENT
  Age: 65 None
  Sex: Female
  Weight: 72.57 kg

DRUGS (6)
  1. SPIRIVA [Suspect]
     Indication: CHRONIC OBSTRUCTIVE PULMONARY DISEASE
     Dosage: 18 MCG
     Route: 055
     Dates: start: 2006
  2. ADVAIR [Concomitant]
     Route: 055
  3. XOPENEX [Concomitant]
     Dosage: 2 PUF
     Route: 055
     Dates: start: 2012
  4. ALBUTEROL [Concomitant]
  5. SINGULAIR [Concomitant]
     Dosage: 10 MG
  6. COMBIVENT [Concomitant]
     Route: 055

REACTIONS (3)
  - Pneumonia [Recovered/Resolved]
  - Product quality issue [Recovered/Resolved]
  - Product quality issue [Recovered/Resolved]
